FAERS Safety Report 9406409 (Version 1)
Quarter: 2013Q3

REPORT INFORMATION
  Report Type: Spontaneous
  Country: IN (occurrence: IN)
  Receive Date: 20130718
  Receipt Date: 20130718
  Transmission Date: 20140515
  Serious: Yes (Other)
  Sender: FDA-Public Use
  Company Number: IN-ROCHE-1249012

PATIENT
  Sex: 0

DRUGS (2)
  1. MIRCERA [Suspect]
     Indication: RENAL FAILURE CHRONIC
     Route: 058
     Dates: start: 201305, end: 201307
  2. MIRCERA [Suspect]
     Indication: HAEMODIALYSIS

REACTIONS (1)
  - Haemoglobin decreased [Unknown]
